FAERS Safety Report 20872775 (Version 1)
Quarter: 2022Q2

REPORT INFORMATION
  Report Type: Spontaneous
  Country: US (occurrence: None)
  Receive Date: 20220524
  Receipt Date: 20220524
  Transmission Date: 20220721
  Serious: Yes (Life-Threatening)
  Sender: FDA-Public Use
  Company Number: None

PATIENT
  Age: 72 Year
  Sex: Male
  Weight: 80.29 kg

DRUGS (1)
  1. LUMASON [Suspect]
     Active Substance: SULFUR HEXAFLUORIDE
     Indication: Anaphylactic reaction
     Dates: start: 20220519, end: 20220520

REACTIONS (4)
  - Respiratory distress [None]
  - Cardiac procedure complication [None]
  - Contrast media allergy [None]
  - Cardiac arrest [None]

NARRATIVE: CASE EVENT DATE: 20220519
